FAERS Safety Report 9555301 (Version 1)
Quarter: 2013Q3

REPORT INFORMATION
  Report Type: Spontaneous
  Country: US (occurrence: None)
  Receive Date: 20130816
  Receipt Date: 20130816
  Transmission Date: 20140515
  Serious: No
  Sender: FDA-Public Use
  Company Number: US-011591

PATIENT
  Age: 28 Year
  Sex: Male
  Weight: 70.31 kg

DRUGS (2)
  1. PICO-SALAX (NOT SPECIFIED) [Suspect]
     Indication: BOWEL PREPARATION
     Dosage: ONE PACKET MIXED WITH 5OZ WATER @ 1900 AND 1 PACKET MIXED IN 5OZ WATER @ 0700 ORAL)?
     Route: 048
     Dates: start: 20130428, end: 20130429
  2. ZYRTEC [Concomitant]

REACTIONS (1)
  - Drug ineffective [None]
